FAERS Safety Report 5789211-0 (Version None)
Quarter: 2008Q2

REPORT INFORMATION
  Report Type: 
  Country: None (occurrence: None)
  Receive Date: 20080626
  Receipt Date: 20080602
  Transmission Date: 20081010
  Serious: Yes (Other)
  Sender: FDA-Public Use
  Company Number: PL-ASTRAZENECA-2008SE03173

PATIENT
  Age: 26935 Day
  Sex: Female
  Weight: 54.8 kg

DRUGS (23)
  1. MEROPENEM [Suspect]
     Route: 042
     Dates: start: 20080526
  2. ZYVOX [Suspect]
     Indication: PNEUMONIA STAPHYLOCOCCAL
     Route: 042
     Dates: start: 20080526, end: 20080528
  3. AMOXICILLIN [Concomitant]
     Route: 042
     Dates: start: 20080520, end: 20080523
  4. CIPROFLOXACIN HCL [Concomitant]
     Route: 042
     Dates: start: 20080520, end: 20080526
  5. CLARITHROMYCIN [Concomitant]
     Route: 048
     Dates: start: 20080526
  6. CEFTAZIDIME [Concomitant]
     Route: 042
     Dates: start: 20080523, end: 20080526
  7. IMMUNE GLOBULIN INTRAVENOUS (HUMAN) [Concomitant]
     Route: 042
     Dates: start: 20080519, end: 20080519
  8. IMMUNE GLOBULIN INTRAVENOUS (HUMAN) [Concomitant]
     Route: 042
     Dates: start: 20080526, end: 20080526
  9. FILGRASTIM [Concomitant]
     Route: 058
     Dates: start: 20080526, end: 20080526
  10. FUROSEMIDE [Concomitant]
     Route: 042
     Dates: start: 20080519, end: 20080519
  11. FUROSEMIDE [Concomitant]
     Route: 042
     Dates: start: 20080526
  12. LEVOTHYROXINE SODIUM [Concomitant]
     Route: 048
  13. ALLOPURINOL [Concomitant]
     Route: 048
     Dates: start: 20080519, end: 20080526
  14. OMEPRAZOLE [Concomitant]
     Route: 048
     Dates: start: 20080528
  15. CALCIUM [Concomitant]
     Route: 048
     Dates: start: 20080526
  16. ALFACALCIDOL [Concomitant]
     Route: 048
     Dates: start: 20080526
  17. ENOXAPARIN SODIUM [Concomitant]
     Dates: start: 20080519
  18. FLUTICASONE PROPIONATE [Concomitant]
     Route: 055
  19. IPRATROPIUM BROMIDE [Concomitant]
     Route: 055
     Dates: start: 20080519
  20. ALBUTEROL [Concomitant]
     Route: 055
     Dates: start: 20080519
  21. ACETAMINOPHEN [Concomitant]
     Route: 048
     Dates: start: 20080519, end: 20080527
  22. TRAMADOL HCL [Concomitant]
     Route: 048
     Dates: start: 20080522, end: 20080522
  23. STEROID THERAPY [Concomitant]

REACTIONS (1)
  - RENAL FAILURE CHRONIC [None]
